FAERS Safety Report 22018447 (Version 2)
Quarter: 2023Q1

REPORT INFORMATION
  Report Type: Spontaneous
  Country: JP (occurrence: JP)
  Receive Date: 20230221
  Receipt Date: 20230310
  Transmission Date: 20230417
  Serious: Yes (Hospitalization, Other)
  Sender: FDA-Public Use
  Company Number: JP-BEH-2023155393

PATIENT
  Age: 6 Decade
  Sex: Male

DRUGS (23)
  1. HUMAN IMMUNOGLOBULIN G [Suspect]
     Active Substance: HUMAN IMMUNOGLOBULIN G
     Indication: Chronic inflammatory demyelinating polyradiculoneuropathy
     Dosage: UNKNOWN
     Route: 042
  2. HUMAN IMMUNOGLOBULIN G [Suspect]
     Active Substance: HUMAN IMMUNOGLOBULIN G
     Dosage: UNKNOWN
     Route: 042
  3. HUMAN IMMUNOGLOBULIN G [Suspect]
     Active Substance: HUMAN IMMUNOGLOBULIN G
     Dosage: UNKNOWN
     Route: 042
  4. HUMAN IMMUNOGLOBULIN G [Suspect]
     Active Substance: HUMAN IMMUNOGLOBULIN G
     Dosage: 0.4G/KG/DAY
     Route: 042
  5. HUMAN IMMUNOGLOBULIN G [Suspect]
     Active Substance: HUMAN IMMUNOGLOBULIN G
     Dosage: 0.4G/KG/DAY
     Route: 042
  6. HUMAN IMMUNOGLOBULIN G [Suspect]
     Active Substance: HUMAN IMMUNOGLOBULIN G
     Dosage: 2G/KG/DAY
     Route: 042
  7. HUMAN IMMUNOGLOBULIN G [Suspect]
     Active Substance: HUMAN IMMUNOGLOBULIN G
     Dosage: 2G/KG/DAY, 22 DAYS AFTER BEING HOSPITALIZED
     Route: 042
  8. HUMAN IMMUNOGLOBULIN G [Suspect]
     Active Substance: HUMAN IMMUNOGLOBULIN G
     Dosage: 1G/KG/DAY, 50 DAYS AFTER BEING HOSPITALIZED
     Route: 042
  9. HUMAN IMMUNOGLOBULIN G [Suspect]
     Active Substance: HUMAN IMMUNOGLOBULIN G
     Dosage: 1G/KG/DAY, 69 DAYS AFTER BEING HOSPITALIZED
     Route: 042
  10. HUMAN IMMUNOGLOBULIN G [Suspect]
     Active Substance: HUMAN IMMUNOGLOBULIN G
     Dosage: 1G/KG/DAY, 94 DAYS AFTER BEING HOSPITALIZED
     Route: 042
  11. HUMAN IMMUNOGLOBULIN G [Suspect]
     Active Substance: HUMAN IMMUNOGLOBULIN G
     Dosage: 1G/KG/DAY, 113 DAYS AFTER BEING HOSPITALIZED
     Route: 042
  12. HUMAN IMMUNOGLOBULIN G [Suspect]
     Active Substance: HUMAN IMMUNOGLOBULIN G
     Dosage: 1G/KG/DAY, 140 DAYS AFTER BEING HOSPITALIZED
     Route: 042
  13. HUMAN IMMUNOGLOBULIN G [Suspect]
     Active Substance: HUMAN IMMUNOGLOBULIN G
     Dosage: 1G/KG/DAY, 168 DAYS AFTER BEING HOSPITALIZED
     Route: 042
  14. HUMAN IMMUNOGLOBULIN G [Suspect]
     Active Substance: HUMAN IMMUNOGLOBULIN G
     Dosage: 1G/KG/DAY, 189 DAYS AFTER BEING HOSPITALIZED
     Route: 042
  15. HUMAN IMMUNOGLOBULIN G [Suspect]
     Active Substance: HUMAN IMMUNOGLOBULIN G
     Dosage: 1G/KG/DAY, 210 DAYS AFTER BEING HOSPITALIZED
     Route: 042
  16. DEXAMETHASONE [Concomitant]
     Active Substance: DEXAMETHASONE
     Indication: Chronic inflammatory demyelinating polyradiculoneuropathy
     Dosage: 40 MG/DAY 4 DAYS/MONTH
  17. DEXAMETHASONE [Concomitant]
     Active Substance: DEXAMETHASONE
     Dosage: 40 MG, 22 DAYS AFTER BEING HOSPITALIZED
  18. DEXAMETHASONE [Concomitant]
     Active Substance: DEXAMETHASONE
     Dosage: 40 MG, 69 DAYS AFTER BEING HOSPITALIZED
  19. DEXAMETHASONE [Concomitant]
     Active Substance: DEXAMETHASONE
     Dosage: 40 MILLIGRAM
  20. DEXAMETHASONE [Concomitant]
     Active Substance: DEXAMETHASONE
     Dosage: 36 MG
  21. DEXAMETHASONE [Concomitant]
     Active Substance: DEXAMETHASONE
     Dosage: 36 MG
  22. DEXAMETHASONE [Concomitant]
     Active Substance: DEXAMETHASONE
     Dosage: 36 MG
  23. DEXAMETHASONE [Concomitant]
     Active Substance: DEXAMETHASONE
     Dosage: 32 MG

REACTIONS (12)
  - Chronic inflammatory demyelinating polyradiculoneuropathy [Unknown]
  - Chronic inflammatory demyelinating polyradiculoneuropathy [Unknown]
  - Hypoaesthesia [Unknown]
  - Muscular weakness [Unknown]
  - Mental disorder [Unknown]
  - Gait disturbance [Unknown]
  - Gait disturbance [Unknown]
  - Walking aid user [Unknown]
  - Dysphagia [Unknown]
  - Muscular weakness [Unknown]
  - Bedridden [Unknown]
  - Muscular weakness [Unknown]
